FAERS Safety Report 7076534-0 (Version None)
Quarter: 2010Q4

REPORT INFORMATION
  Report Type: 
  Country: None (occurrence: None)
  Receive Date: 20101101
  Receipt Date: 20101020
  Transmission Date: 20110411
  Serious: Yes (Other)
  Sender: FDA-Public Use
  Company Number: BR-PFIZER INC-2010114216

PATIENT
  Age: 45 Year
  Sex: Female
  Weight: 59 kg

DRUGS (9)
  1. CHAMPIX [Suspect]
     Indication: SMOKING CESSATION THERAPY
     Dosage: 0.5 MG, 1X/DAY
     Route: 048
     Dates: start: 20100902
  2. CHAMPIX [Suspect]
     Dosage: 1 MG, 2X/DAY (EVERY 12 HOURS)
     Route: 048
     Dates: start: 20100910, end: 20100911
  3. PURAN T4 [Concomitant]
     Indication: THYROID ATROPHY
     Dosage: 100 UG, UNK
     Dates: start: 20070101
  4. TRAMADOL HCL [Concomitant]
     Indication: INTERVERTEBRAL DISC PROTRUSION
     Dosage: 50 MG, 1X/DAY
     Route: 048
     Dates: start: 20040101
  5. TRAMADOL HCL [Concomitant]
     Indication: NECK PAIN
  6. TRAMADOL HCL [Concomitant]
     Indication: BACK PAIN
  7. ZYBAN [Concomitant]
     Indication: SMOKING CESSATION THERAPY
     Dosage: UNK
  8. LEXOTAN [Concomitant]
     Indication: ANTIDEPRESSANT THERAPY
     Dosage: UNK
  9. LEXOTAN [Concomitant]
     Indication: SLEEP DISORDER

REACTIONS (8)
  - ANXIETY [None]
  - APHAGIA [None]
  - DIZZINESS [None]
  - DYSSTASIA [None]
  - GAIT DISTURBANCE [None]
  - MALAISE [None]
  - TORTICOLLIS [None]
  - VOMITING [None]
